FAERS Safety Report 13076707 (Version 1)
Quarter: 2016Q4

REPORT INFORMATION
  Report Type: Spontaneous
  Country: US (occurrence: US)
  Receive Date: 20161230
  Receipt Date: 20161230
  Transmission Date: 20170207
  Serious: Yes (Life-Threatening, Hospitalization, Other)
  Sender: FDA-Public Use
  Company Number: US-SUNOVION-2016SUN003295

PATIENT
  Age: 48 Year
  Sex: Male

DRUGS (2)
  1. ESZOPICLONE. [Suspect]
     Active Substance: ESZOPICLONE
     Dosage: 2 MG, HS
     Route: 048
  2. SERTRALINE [Suspect]
     Active Substance: SERTRALINE HYDROCHLORIDE
     Dosage: 50 MG, HS

REACTIONS (8)
  - Suicide attempt [Unknown]
  - Agitation [Unknown]
  - Drug interaction [Unknown]
  - Crying [Unknown]
  - Anterograde amnesia [Unknown]
  - Paranoia [Unknown]
  - Toxicity to various agents [Unknown]
  - Parasomnia [Unknown]
